FAERS Safety Report 19732489 (Version 1)
Quarter: 2021Q3

REPORT INFORMATION
  Report Type: Spontaneous
  Country: GB (occurrence: GB)
  Receive Date: 20210822
  Receipt Date: 20210822
  Transmission Date: 20211014
  Serious: Yes (Death, Other)
  Sender: FDA-Public Use
  Company Number: GB-TEVA-2021-GB-1943543

PATIENT
  Age: 78 Year
  Sex: Female

DRUGS (59)
  1. TRASTUZUMAB. [Suspect]
     Active Substance: TRASTUZUMAB
     Dosage: 350 MILLIGRAM, ON 22?AUG?2018, THE PATIENT RECEIVED LAST DOSE OF ADMINISTRATION OF TRASTUZUMAB
     Route: 042
     Dates: start: 20160707
  2. POTASSIUM HYDROGEN CARBONATE,SODIUM HYDROGEN CARBONATE, SODIUM DIHYDRO [Concomitant]
     Route: 048
  3. ATORVASTATIN [Concomitant]
     Active Substance: ATORVASTATIN
     Indication: PRODUCT USED FOR UNKNOWN INDICATION
     Dosage: 20 MILLIGRAM DAILY;
     Route: 048
  4. TRIMETHOPRIM. [Concomitant]
     Active Substance: TRIMETHOPRIM
     Indication: URINARY TRACT INFECTION
     Dosage: UNK
     Route: 048
     Dates: start: 20190412, end: 20190414
  5. ZOLEDRONIC ACID [Concomitant]
     Active Substance: ZOLEDRONIC ACID
     Indication: PRODUCT USED FOR UNKNOWN INDICATION
     Dosage: 3.5 MG, UNK EVERY 3?4 WEEKS FOR 9 CYCLES THEN 3 MONTS
     Route: 042
     Dates: start: 20160414, end: 20170112
  6. ZOLEDRONIC ACID [Concomitant]
     Active Substance: ZOLEDRONIC ACID
     Dosage: 3.5 MG, UNK
     Route: 042
     Dates: start: 20190408, end: 20190408
  7. LETROZOLE. [Suspect]
     Active Substance: LETROZOLE
     Indication: PRODUCT USED FOR UNKNOWN INDICATION
     Dosage: 2.5 MILLIGRAM DAILY; ON 04?JUL?2018, THE PATIENT RECEIVED LAST DOSE OF ADMINISTRATION OF LETROZOLE
     Route: 048
     Dates: start: 20160413
  8. PERTUZUMAB. [Suspect]
     Active Substance: PERTUZUMAB
     Dosage: 840 MG, EVERY 3 WEEKS (LOADING DOSE)
     Route: 042
     Dates: start: 20160225, end: 20160225
  9. TRASTUZUMAB EMTANSINE [Suspect]
     Active Substance: ADO-TRASTUZUMAB EMTANSINE
     Route: 065
  10. HUMAN ACTRAPID [Concomitant]
     Active Substance: INSULIN HUMAN
     Indication: PRODUCT USED FOR UNKNOWN INDICATION
     Dosage: UNK
     Route: 058
     Dates: start: 20190620, end: 20190705
  11. DENOSUMAB [Concomitant]
     Active Substance: DENOSUMAB
     Indication: PRODUCT USED FOR UNKNOWN INDICATION
     Dosage: 120 MG,EVERY 3?4 WEEKS
     Route: 058
     Dates: start: 20180110, end: 20190426
  12. DEXAMETHASONE. [Concomitant]
     Active Substance: DEXAMETHASONE
     Indication: PRODUCT USED FOR UNKNOWN INDICATION
     Dosage: 16 MILLIGRAM DAILY; 8 MG, EVERY 0.5 DAYS
     Route: 048
     Dates: start: 20160225
  13. DIPROBASE [Concomitant]
     Active Substance: CHLOROCRESOL
     Indication: RASH PRURITIC
     Dosage: UNK
     Route: 065
  14. DOCUSATE SODIUM. [Concomitant]
     Active Substance: DOCUSATE SODIUM
     Indication: PRODUCT USED FOR UNKNOWN INDICATION
     Dosage: 400 MILLIGRAM DAILY; 200 MILLIGRAM,(400 MILLIGRAM, ONCE A DAY)
     Route: 048
  15. GLICLAZIDE [Concomitant]
     Active Substance: GLICLAZIDE
     Indication: PRODUCT USED FOR UNKNOWN INDICATION
     Dosage: 40 MILLIGRAM DAILY;
     Route: 048
     Dates: start: 20190620, end: 20190705
  16. MAGNESIUM GLYCEROPHOSPHATE [Concomitant]
     Active Substance: MAGNESIUM GLYCEROPHOSPHATE
     Indication: HYPOMAGNESAEMIA
     Dosage: 12 MILLIMOL DAILY; 4 MMOL, EVERY 0.33 DAYS
     Route: 048
     Dates: start: 20160526, end: 20160530
  17. SANDO?K [Concomitant]
     Indication: PRODUCT USED FOR UNKNOWN INDICATION
     Dosage: 4 DOSAGE FORMS DAILY; UNK UNK, (EFFERVESCENT 2 TABLETS), UNIT DOSE : 2 DOSAGE FORMS
     Route: 048
     Dates: start: 20160322, end: 20160326
  18. SITAGLIPTIN [Concomitant]
     Active Substance: SITAGLIPTIN
     Indication: PRODUCT USED FOR UNKNOWN INDICATION
     Dosage: 100 MILLIGRAM DAILY;
     Route: 048
  19. TRAMADOL HYDROCHLORIDE. [Concomitant]
     Active Substance: TRAMADOL HYDROCHLORIDE
     Indication: PRODUCT USED FOR UNKNOWN INDICATION
     Dosage: 200 MILLIGRAM DAILY; 50 MG, (EVERY 0.25 DAY)
     Route: 048
     Dates: start: 20160217
  20. ZOLEDRONIC ACID [Concomitant]
     Active Substance: ZOLEDRONIC ACID
     Dosage: 3 MG, UNK
     Route: 042
     Dates: start: 20190510, end: 20190529
  21. DOCETAXEL. [Suspect]
     Active Substance: DOCETAXEL
     Indication: BREAST CANCER METASTATIC
     Dosage: 65 MG
     Route: 042
     Dates: start: 20160226, end: 20160226
  22. TAMOXIFEN [Suspect]
     Active Substance: TAMOXIFEN
     Indication: BREAST CANCER METASTATIC
     Dosage: 20 MILLIGRAM DAILY;
     Route: 048
     Dates: start: 20180704, end: 20180915
  23. TRASTUZUMAB EMTANSINE [Suspect]
     Active Substance: ADO-TRASTUZUMAB EMTANSINE
     Indication: BREAST CANCER METASTATIC
     Dosage: 220 MG
     Route: 042
     Dates: start: 20180928, end: 20190315
  24. CINACALCET. [Concomitant]
     Active Substance: CINACALCET
     Indication: HYPERCALCAEMIA OF MALIGNANCY
     Dosage: 30 MILLIGRAM DAILY;
     Route: 048
     Dates: start: 20190413
  25. GLICLAZIDE [Concomitant]
     Active Substance: GLICLAZIDE
     Dosage: 80 MILLIGRAM DAILY;
     Route: 048
     Dates: start: 20190425, end: 201905
  26. LINAGLIPTIN [Concomitant]
     Active Substance: LINAGLIPTIN
     Indication: PRODUCT USED FOR UNKNOWN INDICATION
     Dosage: 5 MILLIGRAM DAILY;
     Route: 048
     Dates: start: 201809, end: 201905
  27. METOCLOPRAMIDE. [Concomitant]
     Active Substance: METOCLOPRAMIDE
     Indication: PRODUCT USED FOR UNKNOWN INDICATION
     Dosage: 30 MILLIGRAM DAILY; 10 MILLIGRAM, (30 MILLIGRAM, ONCE A DAY)
     Route: 048
  28. TINZAPARIN [Concomitant]
     Active Substance: TINZAPARIN
     Indication: PRODUCT USED FOR UNKNOWN INDICATION
     Dosage: 1 DOSAGE FORMS DAILY; 1 UNK, 1X/DAY (11000 UNIT)
     Route: 058
     Dates: start: 20180915, end: 20181128
  29. NERATINIB [Suspect]
     Active Substance: NERATINIB
     Indication: PRODUCT USED FOR UNKNOWN INDICATION
     Dosage: 240 MILLIGRAM DAILY;
     Route: 048
     Dates: start: 20190403
  30. POTASSIUM HYDROGEN CARBONATE,SODIUM HYDROGEN CARBONATE, SODIUM DIHYDRO [Concomitant]
     Indication: HYPOPHOSPHATAEMIA
     Route: 048
     Dates: start: 20190611, end: 20190614
  31. AMLODIPINE [Concomitant]
     Active Substance: AMLODIPINE BESYLATE
     Indication: HYPERTENSION
     Dosage: 5 MILLIGRAM DAILY;
     Route: 048
     Dates: start: 20180915, end: 20190529
  32. BUDESONIDE. [Concomitant]
     Active Substance: BUDESONIDE
     Indication: PRODUCT USED FOR UNKNOWN INDICATION
     Dosage: 9 MILLIGRAM DAILY;
     Route: 048
     Dates: start: 20190403, end: 20190523
  33. GLICLAZIDE [Concomitant]
     Active Substance: GLICLAZIDE
     Dosage: 80 MILLIGRAM DAILY;
     Route: 048
     Dates: start: 201809, end: 20190424
  34. ZOLEDRONIC ACID [Concomitant]
     Active Substance: ZOLEDRONIC ACID
     Dosage: 3 MG, UNK
     Route: 042
     Dates: start: 20170628, end: 20171220
  35. PERTUZUMAB. [Suspect]
     Active Substance: PERTUZUMAB
     Indication: BREAST CANCER METASTATIC
     Dosage: 420 MILLIGRAM, 3 WEEKS (MAINTAINENCE DOSE), ON 04?JUL?2018, THE PATIENT RECEIVED LAST DOSE OF ADMINI
     Route: 042
     Dates: start: 20160225
  36. CHLORHEXIDINE GLUCONATE. [Concomitant]
     Active Substance: CHLORHEXIDINE GLUCONATE
     Indication: PRODUCT USED FOR UNKNOWN INDICATION
     Dosage: .8 PERCENT DAILY; 0.2 %, EVERY 0.25 DAY
     Route: 048
     Dates: start: 20160225
  37. LOPERAMIDE [Concomitant]
     Active Substance: LOPERAMIDE
     Indication: PRODUCT USED FOR UNKNOWN INDICATION
     Dosage: 2 MG, AS NEEDED
     Route: 048
     Dates: start: 20160225
  38. MACROGOL [Concomitant]
     Active Substance: POLYETHYLENE GLYCOLS
     Indication: PRODUCT USED FOR UNKNOWN INDICATION
     Dosage: UNK UNK,
     Route: 065
  39. ZOLEDRONIC ACID [Concomitant]
     Active Substance: ZOLEDRONIC ACID
     Dosage: 3.3 MG, MONTHLY
     Route: 042
     Dates: start: 20160226
  40. TRASTUZUMAB. [Suspect]
     Active Substance: TRASTUZUMAB
     Indication: BREAST CANCER METASTATIC
     Dosage: 525 MG, (LOADING DOSE)
     Route: 041
     Dates: start: 20160225, end: 20160225
  41. TRASTUZUMAB. [Suspect]
     Active Substance: TRASTUZUMAB
     Dosage: 400 MG, (MAINTAINENCE DOSE.)
     Route: 042
     Dates: start: 20160225, end: 20160617
  42. CANDESARTAN. [Concomitant]
     Active Substance: CANDESARTAN
     Indication: PRODUCT USED FOR UNKNOWN INDICATION
     Dosage: 8 MILLIGRAM DAILY;
     Route: 048
  43. AMLODIPINE [Concomitant]
     Active Substance: AMLODIPINE BESYLATE
     Dosage: 5 MILLIGRAM DAILY;
     Route: 048
  44. BENZYDAMINE HYDROCHLORIDE [Concomitant]
     Active Substance: BENZYDAMINE HYDROCHLORIDE
     Indication: GLOSSODYNIA
     Dosage: 5 ML
     Route: 061
     Dates: start: 20190606, end: 20190705
  45. BUDESONIDE. [Concomitant]
     Active Substance: BUDESONIDE
     Dosage: 9 MILLIGRAM DAILY;
     Route: 048
     Dates: start: 20190403
  46. MACROGOL [Concomitant]
     Active Substance: POLYETHYLENE GLYCOLS
     Dosage: UNK, EVERY 0.5 DAYS  (SACHET)
     Route: 065
  47. MACROGOL [Concomitant]
     Active Substance: POLYETHYLENE GLYCOLS
     Dosage: 2 UNK UNK, SACHET AT A DOSE OF 2 UNKNOWN UNITS
     Route: 065
  48. OCTASA [Concomitant]
     Active Substance: MESALAMINE
     Indication: GASTROINTESTINAL MOTILITY DISORDER
     Dosage: 2400 MILLIGRAM DAILY; 800 MILLIGRAM,(2400 MILLIGRAM, ONCE A DAY)
     Route: 048
     Dates: start: 20170523
  49. OCTASA [Concomitant]
     Active Substance: MESALAMINE
     Indication: GASTROINTESTINAL MOTILITY DISORDER
     Dosage: 2400 MILLIGRAM DAILY; 800 MG, EVERY 0.33 DAYS
     Route: 048
     Dates: start: 20170523, end: 2017
  50. PHOSPHATE SANDOZ EFFERVESCENT [Concomitant]
     Indication: BLOOD PHOSPHORUS DECREASED
     Dosage: UNK
     Route: 048
     Dates: start: 20190423, end: 20190425
  51. RIVAROXABAN [Concomitant]
     Active Substance: RIVAROXABAN
     Indication: PRODUCT USED FOR UNKNOWN INDICATION
     Dosage: 1 DOSAGE FORMS DAILY; UNK, 1X/DAY
     Route: 048
     Dates: start: 20181128
  52. ZOLEDRONIC ACID [Concomitant]
     Active Substance: ZOLEDRONIC ACID
     Dosage: 3.3 MG, UNK
     Route: 042
     Dates: start: 20170209, end: 20170323
  53. ZOPICLONE [Concomitant]
     Active Substance: ZOPICLONE
     Indication: PRODUCT USED FOR UNKNOWN INDICATION
     Dosage: 3.75 MILLIGRAM DAILY;
     Route: 048
     Dates: start: 20160217
  54. LETROZOLE. [Suspect]
     Active Substance: LETROZOLE
     Indication: BREAST CANCER METASTATIC
  55. DOMPERIDONE [Concomitant]
     Active Substance: DOMPERIDONE
     Indication: PRODUCT USED FOR UNKNOWN INDICATION
     Dosage: 30 MILLIGRAM DAILY; 10 MG, EVERY 0.33 DAYS
     Route: 048
     Dates: start: 20160225
  56. METFORMIN [Concomitant]
     Active Substance: METFORMIN HYDROCHLORIDE
     Indication: PRODUCT USED FOR UNKNOWN INDICATION
     Dosage: 2000 MILLIGRAM DAILY; 1000 MILLIGRAM,  (2000 MILLIGRAM, ONCE A DAY)
     Route: 048
  57. PHOSPHATE SANDOZ EFFERVESCENT [Concomitant]
     Dosage: 2 DOSAGE FORM
     Route: 048
     Dates: start: 20190618, end: 20190625
  58. PHOSPHATE SANDOZ EFFERVESCENT [Concomitant]
     Dosage: 2 DOSAGE FORM
     Route: 048
     Dates: start: 20190611, end: 20190614
  59. POTASSIUM CHLORIDE. [Concomitant]
     Active Substance: POTASSIUM CHLORIDE
     Indication: BLOOD POTASSIUM DECREASED
     Dosage: EVERY 3?4WEEKS FOR 9 CYCLES THEN 3 MONTS, DOSE ONE (MMOL/L) ONCE A DAY AS NECESSARY
     Route: 042
     Dates: start: 20190611, end: 20190620

REACTIONS (11)
  - Rash pruritic [Recovered/Resolved]
  - Weight decreased [Recovered/Resolved]
  - Hypomagnesaemia [Recovered/Resolved]
  - Acute kidney injury [Recovered/Resolved]
  - Vomiting [Recovered/Resolved]
  - Rectal haemorrhage [Not Recovered/Not Resolved]
  - Cholelithiasis [Not Recovered/Not Resolved]
  - Urinary tract infection [Recovered/Resolved]
  - Decreased appetite [Not Recovered/Not Resolved]
  - Diarrhoea [Recovered/Resolved]
  - Back pain [Not Recovered/Not Resolved]

NARRATIVE: CASE EVENT DATE: 20160413
